FAERS Safety Report 20017199 (Version 1)
Quarter: 2021Q4

REPORT INFORMATION
  Report Type: Spontaneous
  Country: None (occurrence: TR)
  Receive Date: 20211030
  Receipt Date: 20211030
  Transmission Date: 20220303
  Serious: Yes (Hospitalization, Other)
  Sender: FDA-Public Use
  Company Number: TR-MICRO LABS LIMITED-ML2021-02578

PATIENT
  Age: 18 Year
  Sex: Female

DRUGS (2)
  1. BUPROPION XL [Suspect]
     Active Substance: BUPROPION HYDROCHLORIDE
     Indication: Suicide attempt
  2. RISPERIDONE [Concomitant]
     Active Substance: RISPERIDONE

REACTIONS (8)
  - Intentional overdose [Unknown]
  - Suicide attempt [Unknown]
  - Toxicity to various agents [Unknown]
  - Dystonia [Recovered/Resolved]
  - Status epilepticus [Unknown]
  - General physical health deterioration [Unknown]
  - Generalised tonic-clonic seizure [Unknown]
  - Liver function test abnormal [Unknown]
